FAERS Safety Report 16804459 (Version 1)
Quarter: 2019Q4

REPORT INFORMATION
  Report Type: Spontaneous
  Country: US (occurrence: US)
  Receive Date: 20190912
  Receipt Date: 20190912
  Transmission Date: 20200122
  Serious: No
  Sender: FDA-Public Use
  Company Number: None

PATIENT
  Age: 53 Year
  Sex: Female

DRUGS (1)
  1. EMGALITY [Suspect]
     Active Substance: GALCANEZUMAB-GNLM
     Indication: MIGRAINE
     Dosage: 300 MG SUBCUTANEOUS EVERY 28 DAYS?
     Route: 058
     Dates: start: 20190908

REACTIONS (2)
  - Muscle spasms [None]
  - Abdominal distension [None]
